FAERS Safety Report 7639648-X (Version None)
Quarter: 2011Q3

REPORT INFORMATION
  Report Type: 
  Country: None (occurrence: None)
  Receive Date: 20110727
  Receipt Date: 20110721
  Transmission Date: 20111222
  Serious: Yes (Hospitalization, Other)
  Sender: FDA-Public Use
  Company Number: IE-ABBOTT-11P-229-0841226-00

PATIENT
  Age: 78 Year
  Sex: Female

DRUGS (3)
  1. VALPROIC ACID [Suspect]
     Dosage: INCREASED OVER TIME TO 2500MG/DAY
     Dates: start: 20110101, end: 20110101
  2. VALPROIC ACID [Suspect]
     Indication: EPILEPSY
     Dosage: DAILY DOSE: 300MG
     Dates: start: 20110101, end: 20110101
  3. VALPROIC ACID [Suspect]
     Dosage: DAILY DOSE: 1000MG
     Dates: start: 20110101

REACTIONS (10)
  - DRUG INEFFECTIVE [None]
  - MOOD SWINGS [None]
  - AMNESIA [None]
  - BALANCE DISORDER [None]
  - PSYCHOMOTOR HYPERACTIVITY [None]
  - CONVULSION [None]
  - HEARING IMPAIRED [None]
  - CONFUSIONAL STATE [None]
  - EYE DISORDER [None]
  - ANGER [None]
